FAERS Safety Report 6249641-X (Version None)
Quarter: 2009Q2

REPORT INFORMATION
  Report Type: 
  Country: None (occurrence: None)
  Receive Date: 20090625
  Receipt Date: 20090625
  Transmission Date: 20091009
  Serious: No
  Sender: FDA-Public Use
  Company Number: None

PATIENT
  Age: 59 Year
  Sex: Female
  Weight: 65.7716 kg

DRUGS (1)
  1. ACIPHEX [Suspect]
     Indication: GASTROOESOPHAGEAL REFLUX DISEASE
     Dosage: 1 TABLET TWICE A DAY PO
     Route: 048
     Dates: start: 20081003, end: 20090209

REACTIONS (1)
  - ABDOMINAL PAIN UPPER [None]
